FAERS Safety Report 21718350 (Version 3)
Quarter: 2023Q1

REPORT INFORMATION
  Report Type: Report from Study
  Country: US (occurrence: US)
  Receive Date: 20221212
  Receipt Date: 20230320
  Transmission Date: 20230418
  Serious: No
  Sender: FDA-Public Use
  Company Number: US-ABBVIE-4224106

PATIENT
  Sex: Male

DRUGS (1)
  1. SKYRIZI [Suspect]
     Active Substance: RISANKIZUMAB-RZAA
     Indication: Crohn^s disease
     Route: 058
     Dates: start: 20220909

REACTIONS (5)
  - Adverse food reaction [Unknown]
  - Headache [Recovered/Resolved]
  - Injection site haemorrhage [Recovering/Resolving]
  - Injection site erythema [Recovered/Resolved]
  - Injection site pain [Unknown]
